FAERS Safety Report 9576124 (Version 1)
Quarter: 2013Q4

REPORT INFORMATION
  Report Type: Spontaneous
  Country: US (occurrence: US)
  Receive Date: 20131001
  Receipt Date: 20131001
  Transmission Date: 20140711
  Serious: No
  Sender: FDA-Public Use
  Company Number: US-AMGEN-USASP2013001179

PATIENT
  Age: 54 Year
  Sex: Female
  Weight: 56 kg

DRUGS (10)
  1. ENBREL [Suspect]
     Indication: PSORIATIC ARTHROPATHY
     Dosage: 50 MG, QWK
     Route: 058
  2. CYMBALTA [Concomitant]
     Dosage: 60 MG, UNK
     Route: 048
  3. ULTRACET [Concomitant]
     Dosage: 37.5 - 325
     Route: 048
  4. PREMARIN [Concomitant]
     Dosage: 0.3 MG, UNK
     Route: 048
  5. NORVASC [Concomitant]
     Dosage: 10 MG, UNK
     Route: 048
  6. SYNTHROID [Concomitant]
     Dosage: 100 MUG, UNK
     Route: 048
  7. TRAZODONE [Concomitant]
     Dosage: 50 MG, UNK
     Route: 048
  8. TOPROL [Concomitant]
     Dosage: 100 MG, UNK
     Route: 048
  9. MOBIC [Concomitant]
     Dosage: 15 MG, UNK
     Route: 048
  10. METHOTREXATE [Concomitant]
     Dosage: 50 MG/2 ML, UNK
     Route: 058

REACTIONS (1)
  - Nausea [Unknown]
